FAERS Safety Report 10547607 (Version 1)
Quarter: 2014Q4

REPORT INFORMATION
  Report Type: Spontaneous
  Country: US (occurrence: None)
  Receive Date: 20141010
  Receipt Date: 20141010
  Transmission Date: 20150529
  Serious: Yes (Hospitalization)
  Sender: FDA-Public Use
  Company Number: 163-POMAL-14062536

PATIENT
  Age: 70 Year
  Sex: Male

DRUGS (9)
  1. TYLENOL [Concomitant]
     Active Substance: ACETAMINOPHEN
  2. OMEGA 3 (FISH OIL) [Concomitant]
     Active Substance: OMEGA-3 FATTY ACIDS
  3. SIMVASTATIN. [Concomitant]
     Active Substance: SIMVASTATIN
  4. POMALYST [Suspect]
     Active Substance: POMALIDOMIDE
     Indication: PLASMA CELL MYELOMA
     Dosage: 2 MG, 28 IN 28 D, PO
     Route: 048
     Dates: start: 20140522
  5. PYRIDIUM (PHENAZOPYRIDINE HYDROCHLORIDE) [Concomitant]
  6. VITAMIN B COMPLEX (B-KOMPLEX ^LECIVA^) [Concomitant]
  7. VELCADE [Concomitant]
     Active Substance: BORTEZOMIB
  8. SERTRALINE HCL (SERTRALINE HYDROCHLORIDE) [Concomitant]
  9. ZANTAC [Suspect]
     Active Substance: RANITIDINE HYDROCHLORIDE

REACTIONS (4)
  - Anaemia [None]
  - Thrombocytopenia [None]
  - Plasma cell myeloma [None]
  - Acute kidney injury [None]

NARRATIVE: CASE EVENT DATE: 2014
